FAERS Safety Report 14607211 (Version 2)
Quarter: 2018Q1

REPORT INFORMATION
  Report Type: Report from Study
  Country: DE (occurrence: DE)
  Receive Date: 20180307
  Receipt Date: 20180312
  Transmission Date: 20180509
  Serious: Yes (Hospitalization)
  Sender: FDA-Public Use
  Company Number: DE-JNJFOC-20180305442

PATIENT
  Age: 52 Year
  Sex: Male
  Weight: 122 kg

DRUGS (1)
  1. XARELTO [Suspect]
     Active Substance: RIVAROXABAN
     Indication: EMBOLISM VENOUS
     Route: 048
     Dates: start: 20120319

REACTIONS (2)
  - Epistaxis [Unknown]
  - Fall [Unknown]

NARRATIVE: CASE EVENT DATE: 20170511
